FAERS Safety Report 7376732-2 (Version None)
Quarter: 2011Q1

REPORT INFORMATION
  Report Type: 
  Country: None (occurrence: None)
  Receive Date: 20110325
  Receipt Date: 20110322
  Transmission Date: 20110831
  Serious: Yes (Hospitalization)
  Sender: FDA-Public Use
  Company Number: US-GILEAD-2011-0037761

PATIENT
  Age: 24 Year
  Sex: Male
  Weight: 68.2 kg

DRUGS (3)
  1. TRUVADA [Suspect]
     Indication: HIV INFECTION
     Dates: start: 20100706
  2. ATAZANAVIR [Suspect]
     Indication: HIV INFECTION
     Dates: start: 20100706
  3. RITONAVIR [Suspect]
     Indication: HIV INFECTION
     Dates: start: 20100706

REACTIONS (1)
  - POLYNEUROPATHY [None]
